FAERS Safety Report 9061950 (Version 1)
Quarter: 2013Q1

REPORT INFORMATION
  Report Type: Spontaneous
  Country: US (occurrence: US)
  Receive Date: 20130204
  Receipt Date: 20130204
  Transmission Date: 20140127
  Serious: Yes (Other)
  Sender: FDA-Public Use
  Company Number: PHEH2013US002536

PATIENT
  Sex: Female

DRUGS (8)
  1. DIOVAN [Suspect]
     Dosage: 80 MG, QD
     Route: 048
  2. PREMARIN [Concomitant]
  3. CLOBETASOL PROPIONATE [Concomitant]
  4. CLOBETASOL [Concomitant]
  5. VITAMIN D [Concomitant]
  6. ASPIRIN [Concomitant]
     Dosage: 81 MG, UNK
  7. SIMVASTATIN [Concomitant]
  8. CLINDAMYCIN [Concomitant]

REACTIONS (1)
  - Dehydration [Unknown]
